FAERS Safety Report 7237577-7 (Version None)
Quarter: 2011Q1

REPORT INFORMATION
  Report Type: 
  Country: None (occurrence: None)
  Receive Date: 20110121
  Receipt Date: 20110114
  Transmission Date: 20110831
  Serious: Yes (Hospitalization)
  Sender: FDA-Public Use
  Company Number: US-NAPPMUNDI-USA-2011-0062343

PATIENT
  Sex: Female

DRUGS (1)
  1. OXYCONTIN [Suspect]
     Indication: PAIN
     Dosage: 80 MG, Q12H
     Route: 048
     Dates: start: 20101006

REACTIONS (4)
  - DRUG EXPOSURE DURING PREGNANCY [None]
  - INADEQUATE ANALGESIA [None]
  - DYSPEPSIA [None]
  - ENDOMETRITIS [None]
